FAERS Safety Report 14023115 (Version 1)
Quarter: 2017Q3

REPORT INFORMATION
  Report Type: Report from Study
  Country: None (occurrence: US)
  Receive Date: 20170929
  Receipt Date: 20170929
  Transmission Date: 20171128
  Serious: Yes (Life-Threatening, Hospitalization, Other)
  Sender: FDA-Public Use
  Company Number: US-ABBVIE-17K-163-2114814-00

PATIENT
  Age: 50 Year
  Sex: Male

DRUGS (1)
  1. HUMIRA [Suspect]
     Active Substance: ADALIMUMAB
     Indication: PSORIATIC ARTHROPATHY
     Route: 058
     Dates: start: 2015, end: 20170912

REACTIONS (8)
  - Small intestinal obstruction [Unknown]
  - Platelet count decreased [Unknown]
  - Vomiting [Recovered/Resolved]
  - Gastrointestinal infection [Unknown]
  - Intestinal obstruction [Not Recovered/Not Resolved]
  - Gastrointestinal necrosis [Unknown]
  - Hypotension [Unknown]
  - Brain death [Unknown]

NARRATIVE: CASE EVENT DATE: 2017
